FAERS Safety Report 9981606 (Version 1)
Quarter: 2014Q1

REPORT INFORMATION
  Report Type: Spontaneous
  Country: US (occurrence: US)
  Receive Date: 20140307
  Receipt Date: 20140307
  Transmission Date: 20141002
  Serious: No
  Sender: FDA-Public Use
  Company Number: US-ABBVIE-13P-163-1179842-00

PATIENT
  Age: 63 Year
  Sex: Male
  Weight: 86.26 kg

DRUGS (1)
  1. HUMIRA [Suspect]
     Indication: PSORIASIS
     Dates: start: 20110220, end: 20110419

REACTIONS (7)
  - Lymphoedema [Not Recovered/Not Resolved]
  - Liver injury [Recovered/Resolved]
  - Liver function test abnormal [Recovered/Resolved]
  - Gait disturbance [Unknown]
  - Movement disorder [Unknown]
  - Hypersomnia [Unknown]
  - Abnormal behaviour [Unknown]
